FAERS Safety Report 7250667-8 (Version None)
Quarter: 2011Q1

REPORT INFORMATION
  Report Type: 
  Country: None (occurrence: None)
  Receive Date: 20110128
  Receipt Date: 20110125
  Transmission Date: 20110831
  Serious: Yes (Hospitalization)
  Sender: FDA-Public Use
  Company Number: DE-PFIZER INC-2006127408

PATIENT
  Age: 64 Year
  Sex: Male
  Weight: 64.5 kg

DRUGS (5)
  1. METOCLOPRAMIDE HYDROCHLORIDE [Concomitant]
     Route: 048
     Dates: start: 20050904
  2. SUNITINIB MALATE [Suspect]
     Indication: METASTATIC RENAL CELL CARCINOMA
     Dosage: 50 MG, 1X/DAY, DAY 1-28, EVERY 6 WEEKS
     Route: 048
     Dates: start: 20060120
  3. AMLODIPINE [Concomitant]
     Route: 048
     Dates: start: 19950101
  4. ESIDRIX [Concomitant]
     Route: 048
     Dates: start: 19950101
  5. OMEPRAZOLE [Concomitant]
     Route: 048
     Dates: start: 20051001

REACTIONS (4)
  - RENAL IMPAIRMENT [None]
  - DEHYDRATION [None]
  - VOMITING [None]
  - NAUSEA [None]
